FAERS Safety Report 19222550 (Version 1)
Quarter: 2021Q2

REPORT INFORMATION
  Report Type: Spontaneous
  Country: US (occurrence: US)
  Receive Date: 20210505
  Receipt Date: 20210505
  Transmission Date: 20210717
  Serious: No
  Sender: FDA-Public Use
  Company Number: None

PATIENT
  Age: 56 Year
  Sex: Female
  Weight: 114.31 kg

DRUGS (2)
  1. OXYCODONE 5MG [Suspect]
     Active Substance: OXYCODONE
     Indication: SPINAL OSTEOARTHRITIS
     Route: 048
     Dates: start: 20200611, end: 20210420
  2. ACETAMINOPHEN 300MG/CODEINE 30MG TAB [Suspect]
     Active Substance: ACETAMINOPHEN\CODEINE PHOSPHATE
     Dosage: ?          OTHER DOSE:300/30MG;?
     Route: 048
     Dates: start: 20190520, end: 20200709

REACTIONS (1)
  - Treatment failure [None]

NARRATIVE: CASE EVENT DATE: 20201106
